FAERS Safety Report 8133367-1 (Version None)
Quarter: 2012Q1

REPORT INFORMATION
  Report Type: 
  Country: None (occurrence: None)
  Receive Date: 20120213
  Receipt Date: 20120208
  Transmission Date: 20120608
  Serious: Yes (Life-Threatening, Hospitalization, Disabling)
  Sender: FDA-Public Use
  Company Number: US-BAYER-2012-013174

PATIENT
  Age: 44 Year
  Sex: Male

DRUGS (1)
  1. AVELOX [Suspect]
     Dosage: UNK
     Route: 042
     Dates: start: 20120129, end: 20120129

REACTIONS (3)
  - PYREXIA [None]
  - DYSPNOEA [None]
  - BLOOD PRESSURE DECREASED [None]
